FAERS Safety Report 9242959 (Version 2)
Quarter: 2013Q2

REPORT INFORMATION
  Report Type: Spontaneous
  Country: FR (occurrence: FR)
  Receive Date: 20130420
  Receipt Date: 20130501
  Transmission Date: 20140414
  Serious: Yes (Hospitalization)
  Sender: FDA-Public Use
  Company Number: FR-ABBOTT-13X-056-1078140-00

PATIENT
  Age: 76 Year
  Sex: Female

DRUGS (10)
  1. DEPAKINE [Suspect]
     Indication: ENCEPHALITIS
     Route: 065
     Dates: start: 20130309, end: 20130313
  2. AMOXICILLINE [Suspect]
     Indication: ENCEPHALITIS
     Route: 042
     Dates: start: 20130309, end: 20130312
  3. AMOXICILLINE [Suspect]
     Route: 042
     Dates: start: 20130315
  4. ACICLOVIR [Suspect]
     Indication: ENCEPHALITIS
     Route: 042
     Dates: start: 20130309
  5. ZESTORETIC [Concomitant]
     Indication: PRODUCT USED FOR UNKNOWN INDICATION
  6. HYPERIUM [Concomitant]
     Indication: PRODUCT USED FOR UNKNOWN INDICATION
  7. LIPANOR [Concomitant]
     Indication: PRODUCT USED FOR UNKNOWN INDICATION
  8. XANAX [Concomitant]
     Indication: PRODUCT USED FOR UNKNOWN INDICATION
  9. DAFLON [Concomitant]
     Indication: PRODUCT USED FOR UNKNOWN INDICATION
  10. RIVOTRIL [Concomitant]
     Indication: PRODUCT USED FOR UNKNOWN INDICATION

REACTIONS (2)
  - Renal failure acute [Unknown]
  - Blood creatinine increased [Unknown]
